FAERS Safety Report 10456049 (Version 1)
Quarter: 2014Q3

REPORT INFORMATION
  Report Type: Spontaneous
  Country: US (occurrence: None)
  Receive Date: 20140915
  Receipt Date: 20140915
  Transmission Date: 20150326
  Serious: Yes (Other)
  Sender: FDA-Public Use
  Company Number: None

PATIENT
  Age: 9 Year
  Sex: Female

DRUGS (1)
  1. AMOXICILLIN. [Suspect]
     Active Substance: AMOXICILLIN
     Indication: INFECTION
     Dosage: 2 TEASPOONFULS
     Route: 048
     Dates: start: 20140319, end: 20140328

REACTIONS (4)
  - Underdose [None]
  - Product label issue [None]
  - Product quality issue [None]
  - Product formulation issue [None]

NARRATIVE: CASE EVENT DATE: 20140319
